FAERS Safety Report 13152247 (Version 1)
Quarter: 2017Q1

REPORT INFORMATION
  Report Type: Spontaneous
  Country: US (occurrence: US)
  Receive Date: 20170125
  Receipt Date: 20170125
  Transmission Date: 20170428
  Serious: No
  Sender: FDA-Public Use
  Company Number: US-SHIRE-US201700753

PATIENT
  Age: 58 Year
  Sex: Female
  Weight: 58.96 kg

DRUGS (2)
  1. XIIDRA [Suspect]
     Active Substance: LIFITEGRAST
     Indication: DRY EYE
     Dosage: 1 GTT (IN BOTH EYES), 2X/DAY:BID
     Route: 047
     Dates: start: 20161208, end: 20161214
  2. RESTASIS [Concomitant]
     Active Substance: CYCLOSPORINE
     Indication: PRODUCT USED FOR UNKNOWN INDICATION
     Dosage: UNK, UNKNOWN
     Route: 065

REACTIONS (15)
  - Lip swelling [Recovered/Resolved]
  - Chest discomfort [Recovered/Resolved]
  - Blister [Recovered/Resolved]
  - Decreased appetite [Recovered/Resolved]
  - Dry throat [Recovered/Resolved]
  - Rash [Not Recovered/Not Resolved]
  - Chest pain [Recovered/Resolved]
  - Dizziness [Recovered/Resolved]
  - Tremor [Recovered/Resolved]
  - Abdominal pain upper [Recovered/Resolved]
  - Dyspnoea [Recovered/Resolved]
  - Gingival swelling [Recovered/Resolved]
  - Skin exfoliation [Recovered/Resolved]
  - Dry mouth [Recovered/Resolved]
  - Dysgeusia [Recovered/Resolved]

NARRATIVE: CASE EVENT DATE: 201612
